FAERS Safety Report 7999472-5 (Version None)
Quarter: 2011Q4

REPORT INFORMATION
  Report Type: 
  Country: None (occurrence: None)
  Receive Date: 20111221
  Receipt Date: 20111207
  Transmission Date: 20120403
  Serious: Yes (Life-Threatening, Hospitalization, Other)
  Sender: FDA-Public Use
  Company Number: DE-PFIZER INC-2011131775

PATIENT
  Age: 79 Year
  Sex: Female

DRUGS (5)
  1. IMERON [Suspect]
     Indication: COMPUTERISED TOMOGRAM THORAX
     Dosage: 49000 MG, SINGLE
     Route: 042
     Dates: start: 20110420, end: 20110420
  2. MIDAZOLAM [Suspect]
     Indication: ECHOCARDIOGRAM
     Dosage: 3 MG, SINGLE
     Route: 042
     Dates: start: 20110420, end: 20110420
  3. DICLOFENAC RESINATE [Suspect]
     Dosage: 75 MG, 2X/DAY,
     Route: 048
     Dates: start: 20110422, end: 20110427
  4. RAMIPRIL [Suspect]
     Dosage: 2.5 MG, 2X/DAY
     Route: 048
     Dates: start: 20091101, end: 20110426
  5. DICLOFENAC RESINATE [Suspect]
     Dosage: 75 MG, 1X/DAY
     Route: 048
     Dates: start: 20110421, end: 20110421

REACTIONS (3)
  - BLOOD CREATININE INCREASED [None]
  - PERICARDIAL EFFUSION [None]
  - RENAL FAILURE ACUTE [None]
